FAERS Safety Report 23504593 (Version 1)
Quarter: 2024Q1

REPORT INFORMATION
  Report Type: Spontaneous
  Country: US (occurrence: None)
  Receive Date: 20240208
  Receipt Date: 20240208
  Transmission Date: 20240410
  Serious: Yes (Disabling)
  Sender: FDA-Public Use
  Company Number: None

PATIENT
  Age: 41 Year
  Sex: Female
  Weight: 75.6 kg

DRUGS (23)
  1. GADAVIST [Suspect]
     Active Substance: GADOBUTROL
     Indication: Scan with contrast
     Dosage: OTHER QUANTITY : 7.5 ML;?OTHER FREQUENCY : ONCE;?
     Route: 042
     Dates: start: 20231215, end: 20231215
  2. naltrexone (low dose) [Concomitant]
  3. ZINC [Concomitant]
     Active Substance: PYRITHIONE ZINC\ZINC\ZINC CHLORIDE
  4. Vitamin C with Rose Hips [Concomitant]
  5. MAGNESIUM GLYCINATE [Concomitant]
     Active Substance: MAGNESIUM GLYCINATE
  6. Dihydro berberine [Concomitant]
  7. Borage Oil DIM with Vitamin E [Concomitant]
  8. Chromium ChromeMate [Concomitant]
  9. CDP Choline [Concomitant]
  10. Alpha GPC [Concomitant]
  11. L-THEANINE [Concomitant]
  12. Saffron extract [Concomitant]
  13. L-TYROSINE [Concomitant]
  14. Holy Basil (Tulsi extract [Concomitant]
  15. R-ALPHA LIPOIC ACID [Concomitant]
  16. GABA [Concomitant]
     Active Substance: HOMEOPATHICS
  17. GINKGO [Concomitant]
     Active Substance: GINKGO
  18. COENZYME Q10 [Concomitant]
     Active Substance: DIETARY SUPPLEMENT\UBIDECARENONE
  19. Turmeric with bioperine [Concomitant]
  20. Probiotics Fish oil [Concomitant]
  21. EPA/DHA NAC [Concomitant]
  22. DIETARY SUPPLEMENT\HERBALS\MILK THISTLE [Concomitant]
     Active Substance: MILK THISTLE
  23. QUERCETIN [Concomitant]

REACTIONS (8)
  - Gadolinium deposition disease [None]
  - Temperature regulation disorder [None]
  - Muscle contractions involuntary [None]
  - Brain fog [None]
  - Memory impairment [None]
  - Clumsiness [None]
  - Depression [None]
  - Crying [None]

NARRATIVE: CASE EVENT DATE: 20231215
